FAERS Safety Report 24450118 (Version 1)
Quarter: 2024Q4

REPORT INFORMATION
  Report Type: Spontaneous
  Country: US (occurrence: US)
  Receive Date: 20241017
  Receipt Date: 20241017
  Transmission Date: 20250115
  Serious: No
  Sender: BRISTOL-MYERS SQUIBB COMPANY
  Company Number: US-BRISTOL-MYERS SQUIBB COMPANY-2024-163237

PATIENT
  Age: 63 Year
  Sex: Female

DRUGS (2)
  1. ORENCIA [Suspect]
     Active Substance: ABATACEPT
     Indication: Rheumatoid arthritis
     Route: 058
     Dates: start: 201510
  2. TERIPARATIDE [Concomitant]
     Active Substance: TERIPARATIDE
     Indication: Bone disorder
     Dosage: PEN (ALVOGEN)

REACTIONS (2)
  - Joint swelling [Unknown]
  - Arthralgia [Unknown]
